FAERS Safety Report 25155285 (Version 1)
Quarter: 2025Q2

REPORT INFORMATION
  Report Type: Spontaneous
  Country: FR (occurrence: FR)
  Receive Date: 20250403
  Receipt Date: 20250403
  Transmission Date: 20250717
  Serious: Yes (Hospitalization, Other)
  Sender: AUROBINDO
  Company Number: FR-AFSSAPS-BR2025000195

PATIENT
  Age: 79 Year
  Sex: Male
  Weight: 57 kg

DRUGS (2)
  1. DOXYCYCLINE [Suspect]
     Active Substance: DOXYCYCLINE
     Indication: Whipple^s disease
     Dosage: 200 MILLIGRAM, ONCE A DAY
     Route: 048
     Dates: start: 20250222, end: 20250302
  2. PLAQUENIL [Suspect]
     Active Substance: HYDROXYCHLOROQUINE SULFATE
     Indication: Whipple^s disease
     Dosage: 600 MILLIGRAM, ONCE A DAY
     Route: 048
     Dates: start: 20250222, end: 20250302

REACTIONS (1)
  - Acute generalised exanthematous pustulosis [Recovered/Resolved]

NARRATIVE: CASE EVENT DATE: 20250302
